FAERS Safety Report 15726779 (Version 2)
Quarter: 2018Q4

REPORT INFORMATION
  Report Type: Report from Study
  Country: None (occurrence: PT)
  Receive Date: 20181217
  Receipt Date: 20181218
  Transmission Date: 20190205
  Serious: No
  Sender: FDA-Public Use
  Company Number: PT-ABBVIE-18K-130-2592490-00

PATIENT
  Age: 53 Year
  Sex: Male

DRUGS (6)
  1. INDOCID [Concomitant]
     Active Substance: INDOMETHACIN
     Indication: ANKYLOSING SPONDYLITIS
     Route: 048
     Dates: start: 2007
  2. SALAZOPIRINA [Concomitant]
     Active Substance: SULFASALAZINE
     Indication: ANKYLOSING SPONDYLITIS
     Route: 048
     Dates: start: 2007
  3. SALAZOPIRINA [Concomitant]
     Active Substance: SULFASALAZINE
     Dosage: FREQUENCY TEXT: AT MORNING AND AT NIGHT
     Route: 048
  4. HUMIRA [Suspect]
     Active Substance: ADALIMUMAB
     Indication: ANKYLOSING SPONDYLITIS
     Route: 058
     Dates: start: 20161202, end: 2017
  5. INDOCID [Concomitant]
     Active Substance: INDOMETHACIN
     Route: 048
  6. HUMIRA [Suspect]
     Active Substance: ADALIMUMAB
     Route: 058
     Dates: start: 2017

REACTIONS (2)
  - Gastrointestinal bacterial infection [Unknown]
  - Intestinal polyp [Recovered/Resolved]

NARRATIVE: CASE EVENT DATE: 20180713
